FAERS Safety Report 5869350-6 (Version None)
Quarter: 2008Q3

REPORT INFORMATION
  Report Type: 
  Country: None (occurrence: None)
  Receive Date: 20080828
  Receipt Date: 20080820
  Transmission Date: 20090109
  Serious: Yes (Death, Hospitalization)
  Sender: FDA-Public Use
  Company Number: 230001M08CHN

PATIENT
  Age: 41 Year
  Sex: Male
  Weight: 82.5 kg

DRUGS (8)
  1. REBIF [Suspect]
     Indication: MULTIPLE SCLEROSIS
     Dosage: 22 MCG, 3 IN 1 WEEKS, SUBCUTANEOUS
     Route: 058
     Dates: start: 20080729, end: 20080731
  2. PROMETHAZINE [Suspect]
     Indication: VOMITING
     Dosage: 25 MCG, ONCE
     Dates: start: 20080801, end: 20080801
  3. SALVIA MILTIORRHHIZA ROOT [Concomitant]
  4. PREDNISONE TAB [Concomitant]
  5. METHYLPREDNISOLONE 16MG TAB [Concomitant]
  6. ACE INHIBITOR NOS [Concomitant]
  7. CEREBROLYSIN [Concomitant]
  8. CALCITRIOL [Concomitant]

REACTIONS (18)
  - ANOREXIA [None]
  - BLOOD GLUCOSE DECREASED [None]
  - CARDIAC ARREST [None]
  - CARDIAC FAILURE [None]
  - COLD SWEAT [None]
  - DYSPNOEA [None]
  - ELECTROCARDIOGRAM ST-T CHANGE [None]
  - FATIGUE [None]
  - HYPERHIDROSIS [None]
  - HYPOTENSION [None]
  - MYALGIA [None]
  - NAUSEA [None]
  - RALES [None]
  - RESPIRATORY FAILURE [None]
  - SHOCK [None]
  - SINUS TACHYCARDIA [None]
  - SOMNOLENCE [None]
  - VOMITING [None]
